FAERS Safety Report 19353168 (Version 2)
Quarter: 2021Q2

REPORT INFORMATION
  Report Type: Spontaneous
  Country: JP (occurrence: JP)
  Receive Date: 20210531
  Receipt Date: 20210630
  Transmission Date: 20210717
  Serious: Yes (Other)
  Sender: FDA-Public Use
  Company Number: NVSJ2021JP007551

PATIENT
  Age: 41 Year
  Sex: Male

DRUGS (1)
  1. BEOVU [Suspect]
     Active Substance: BROLUCIZUMAB-DBLL
     Indication: AGE-RELATED MACULAR DEGENERATION
     Dosage: 6 MG
     Route: 031
     Dates: start: 20210428, end: 20210428

REACTIONS (14)
  - Retinal vasculitis [Recovering/Resolving]
  - Vitreous opacities [Unknown]
  - Iritis [Unknown]
  - Retinal vein occlusion [Recovering/Resolving]
  - Retinal perivascular sheathing [Unknown]
  - Visual impairment [Unknown]
  - Vision blurred [Unknown]
  - Retinal disorder [Unknown]
  - Scleritis [Unknown]
  - Visual acuity reduced transiently [Recovering/Resolving]
  - Intraocular pressure increased [Unknown]
  - Eye pain [Recovered/Resolved]
  - Vitreous floaters [Not Recovered/Not Resolved]
  - Keratic precipitates [Recovered/Resolved]

NARRATIVE: CASE EVENT DATE: 20210508
